FAERS Safety Report 7766703-6 (Version None)
Quarter: 2011Q3

REPORT INFORMATION
  Report Type: 
  Country: None (occurrence: None)
  Receive Date: 20110922
  Receipt Date: 20110916
  Transmission Date: 20111222
  Serious: Yes (Hospitalization)
  Sender: FDA-Public Use
  Company Number: US-AMGEN-QUU373317

PATIENT
  Age: 63 Year
  Sex: Male
  Weight: 86.7 kg

DRUGS (14)
  1. ENBREL [Suspect]
     Indication: PSORIATIC ARTHROPATHY
     Dates: start: 20010305
  2. AMITRIPTYLINE HYDROCHLORIDE [Concomitant]
     Dosage: UNK UNK, QD
  3. LISINOPRIL AND HYDROCHLOROTHIAZIDE [Concomitant]
     Dosage: UNK UNK, UNK
  4. ATENOLOL AND CHLORTHALIDONE [Concomitant]
     Dosage: UNK UNK, UNK
  5. EZETIMIBE [Concomitant]
     Dosage: 10 MG, QD
  6. STELERA [Concomitant]
  7. KETOCONAZOLE [Concomitant]
     Dosage: UNK UNK, UNK
  8. GEMFIBROZIL [Concomitant]
     Dosage: UNK UNK, UNK
  9. LANSOPRAZOLE [Concomitant]
     Dosage: 30 MG, QD
  10. ROSUVASTATIN CALCIUM [Concomitant]
     Dosage: 10 MG, QD
  11. ISOSORBIDE MONONITRATE [Concomitant]
     Dosage: 30 MG, QD
  12. CALCIPOTRIENE [Concomitant]
     Dosage: UNK UNK, UNK
  13. UNSPECIFIED MEDICATION [Concomitant]
     Dosage: UNK UNK, UNK
  14. ALLOPURINOL [Concomitant]
     Dosage: UNK UNK, UNK

REACTIONS (5)
  - PROSTATE CANCER [None]
  - HERNIA [None]
  - OESOPHAGEAL CANDIDIASIS [None]
  - COLON CANCER [None]
  - POST PROCEDURAL INFECTION [None]
